FAERS Safety Report 10505818 (Version 1)
Quarter: 2014Q4

REPORT INFORMATION
  Report Type: Spontaneous
  Country: US (occurrence: US)
  Receive Date: 20141008
  Receipt Date: 20141008
  Transmission Date: 20150528
  Serious: No
  Sender: FDA-Public Use
  Company Number: US-SA-2013SA105409

PATIENT
  Age: 64 Year
  Sex: Female

DRUGS (8)
  1. METHOTREXATE [Concomitant]
     Active Substance: METHOTREXATE
  2. FOLIC ACID. [Concomitant]
     Active Substance: FOLIC ACID
     Indication: LIVER DISORDER
  3. ARAVA [Suspect]
     Active Substance: LEFLUNOMIDE
  4. PLAQUENIL [Concomitant]
     Active Substance: HYDROXYCHLOROQUINE SULFATE
  5. ARAVA [Concomitant]
     Active Substance: LEFLUNOMIDE
  6. LACTAID [Suspect]
     Active Substance: LACTASE
     Indication: LACTOSE INTOLERANCE
     Route: 048
     Dates: start: 20130930
  7. NAPROXEN. [Concomitant]
     Active Substance: NAPROXEN
     Indication: RHEUMATOID ARTHRITIS
  8. CYMBALTA [Concomitant]
     Active Substance: DULOXETINE HYDROCHLORIDE
     Indication: FIBROMYALGIA

REACTIONS (5)
  - Lip swelling [Unknown]
  - Contusion [Unknown]
  - Pain [Unknown]
  - Dry mouth [Unknown]
  - Swelling face [Unknown]
